FAERS Safety Report 6073051-1 (Version None)
Quarter: 2009Q1

REPORT INFORMATION
  Report Type: 
  Country: None (occurrence: None)
  Receive Date: 20090211
  Receipt Date: 20090209
  Transmission Date: 20090719
  Serious: Yes (Life-Threatening, Hospitalization)
  Sender: FDA-Public Use
  Company Number: ES-BRISTOL-MYERS SQUIBB COMPANY-14498372

PATIENT
  Age: 31 Year
  Sex: Male

DRUGS (3)
  1. EFAVIRENZ [Suspect]
     Indication: HIV INFECTION
     Dates: start: 20030402, end: 20031104
  2. STAVUDINE [Suspect]
     Indication: HIV INFECTION
     Dates: start: 20030402, end: 20031104
  3. LAMIVUDINE [Suspect]
     Indication: HIV INFECTION
     Dates: start: 20030402, end: 20031104

REACTIONS (2)
  - DEPRESSION [None]
  - SUICIDE ATTEMPT [None]
